FAERS Safety Report 9702054 (Version 2)
Quarter: 2014Q1

REPORT INFORMATION
  Report Type: Spontaneous
  Country: JP (occurrence: JP)
  Receive Date: 20131121
  Receipt Date: 20140114
  Transmission Date: 20141002
  Serious: Yes (Hospitalization, Other)
  Sender: FDA-Public Use
  Company Number: PHHY2013JP133392

PATIENT
  Age: 73 Year
  Sex: Female

DRUGS (4)
  1. TEGRETOL [Suspect]
     Indication: NEURALGIA
     Dosage: 100 MG, DAILY
     Route: 048
     Dates: start: 20131109, end: 20131112
  2. VALTREX [Concomitant]
     Dosage: 3000 MG, UNK
     Route: 048
     Dates: start: 20131109, end: 20131112
  3. METHYLCOBAL [Concomitant]
     Dosage: 1500 UG, UNK
     Route: 048
     Dates: start: 20131109, end: 20131112
  4. ALANTA [Concomitant]
     Dosage: 300 MG, UNK
     Route: 048
     Dates: start: 20131109, end: 20131112

REACTIONS (4)
  - Rash [Recovering/Resolving]
  - Vasculitis [Unknown]
  - Haemoglobin decreased [Unknown]
  - White blood cell count increased [Unknown]
